FAERS Safety Report 12728476 (Version 1)
Quarter: 2016Q3

REPORT INFORMATION
  Report Type: Spontaneous
  Country: US (occurrence: US)
  Receive Date: 20160909
  Receipt Date: 20160909
  Transmission Date: 20161109
  Serious: No
  Sender: FDA-Public Use
  Company Number: None

PATIENT
  Age: 75 Year
  Sex: Female

DRUGS (11)
  1. OCYTINQVIT [Concomitant]
  2. GABAPETIN [Concomitant]
     Active Substance: GABAPENTIN
  3. REVLIMID [Suspect]
     Active Substance: LENALIDOMIDE
     Indication: PLASMA CELL MYELOMA
     Route: 048
     Dates: start: 20160901, end: 20160905
  4. DEXAMETHOXONE [Concomitant]
  5. FLUDRICORTIXONE [Concomitant]
  6. AERINOSIDES [Concomitant]
  7. DOCUSATE [Concomitant]
     Active Substance: DOCUSATE
  8. BISACODYL. [Concomitant]
     Active Substance: BISACODYL
  9. ACETAMINOPHEN. [Concomitant]
     Active Substance: ACETAMINOPHEN
  10. PAMOPRAXOLE [Concomitant]
  11. FLUTICOCONE NASAL SPRAY [Concomitant]

REACTIONS (1)
  - Urticaria [None]

NARRATIVE: CASE EVENT DATE: 20160904
